FAERS Safety Report 24922507 (Version 2)
Quarter: 2025Q3

REPORT INFORMATION
  Report Type: Spontaneous
  Country: EU (occurrence: EU)
  Receive Date: 20250204
  Receipt Date: 20250810
  Transmission Date: 20251021
  Serious: Yes (Other)
  Sender: ALEXION PHARMACEUTICALS
  Company Number: EU-AstraZeneca-CH-00795274AM

PATIENT
  Age: 62 Year
  Sex: Female

DRUGS (3)
  1. SYMBICORT [Suspect]
     Active Substance: BUDESONIDE\FORMOTEROL FUMARATE DIHYDRATE
     Indication: Asthma
  2. SYMBICORT [Suspect]
     Active Substance: BUDESONIDE\FORMOTEROL FUMARATE DIHYDRATE
  3. VITAMIN D [Concomitant]
     Active Substance: VITAMIN D NOS
     Indication: Asthenia

REACTIONS (8)
  - Dyspnoea [Unknown]
  - Dyspnoea [Not Recovered/Not Resolved]
  - Malaise [Recovered/Resolved]
  - Asthenia [Unknown]
  - Influenza [Unknown]
  - Feeling abnormal [Not Recovered/Not Resolved]
  - Fatigue [Unknown]
  - Wrong technique in product usage process [Unknown]

NARRATIVE: CASE EVENT DATE: 20240101
